FAERS Safety Report 19899054 (Version 1)
Quarter: 2021Q3

REPORT INFORMATION
  Report Type: Spontaneous
  Country: US (occurrence: US)
  Receive Date: 20210929
  Receipt Date: 20210929
  Transmission Date: 20211014
  Serious: No
  Sender: FDA-Public Use
  Company Number: US-LUPIN PHARMACEUTICALS INC.-2021-18190

PATIENT
  Age: 45 Year
  Sex: Male

DRUGS (2)
  1. TRIAMCINOLONE [Suspect]
     Active Substance: TRIAMCINOLONE
     Indication: MELKERSSON-ROSENTHAL SYNDROME
     Dosage: UNK
     Route: 065
  2. 5?FLUOROURACIL [Concomitant]
     Active Substance: FLUOROURACIL
     Indication: MELKERSSON-ROSENTHAL SYNDROME
     Dosage: UNK (0.1?0.5CC AT A CONCENTRATION OF 50 MG/ML)
     Route: 065

REACTIONS (1)
  - Atrophy [Unknown]
